FAERS Safety Report 23873942 (Version 2)
Quarter: 2024Q2

REPORT INFORMATION
  Report Type: Spontaneous
  Country: JP (occurrence: JP)
  Receive Date: 20240520
  Receipt Date: 20240605
  Transmission Date: 20240716
  Serious: Yes (Other)
  Sender: FDA-Public Use
  Company Number: JP-MSD-M2024-18298

PATIENT
  Age: 6 Decade
  Sex: Female

DRUGS (1)
  1. PREVYMIS [Suspect]
     Active Substance: LETERMOVIR
     Indication: Antiviral prophylaxis
     Dosage: UNK
     Route: 065
     Dates: start: 202404

REACTIONS (1)
  - Engraft failure [Unknown]

NARRATIVE: CASE EVENT DATE: 20240101
